FAERS Safety Report 10368342 (Version 1)
Quarter: 2014Q1

REPORT INFORMATION
  Report Type: Spontaneous
  Country: US (occurrence: None)
  Receive Date: 20140306
  Receipt Date: 20140306
  Transmission Date: 20141002
  Serious: Yes (Other)
  Sender: FDA-Public Use
  Company Number: 163-21880-13022772

PATIENT
  Age: 59 Year
  Sex: Female
  Weight: 68.9 kg

DRUGS (1)
  1. REVLIMID (LENALIDOMIDE) (10 MILLIGRAM, CAPSULES) [Suspect]
     Indication: PLASMA CELL MYELOMA
     Dosage: 10 MG, 28 IN 28 D, PO?10/16/2012 - TEMPORARILY INTERRUPTED
     Route: 048
     Dates: start: 20121016

REACTIONS (1)
  - Haemoglobin decreased [None]
